FAERS Safety Report 7132206-5 (Version None)
Quarter: 2010Q4

REPORT INFORMATION
  Report Type: 
  Country: None (occurrence: None)
  Receive Date: 20101129
  Receipt Date: 20101129
  Transmission Date: 20110411
  Serious: Yes (Other)
  Sender: FDA-Public Use
  Company Number: None

PATIENT
  Sex: Male
  Weight: 42.8649 kg

DRUGS (1)
  1. STRATTERA [Suspect]
     Indication: ATTENTION DEFICIT/HYPERACTIVITY DISORDER
     Dosage: 60 MG Q.AM. ORAL
     Route: 048
     Dates: start: 20100909, end: 20100929

REACTIONS (11)
  - AGITATION [None]
  - DECREASED APPETITE [None]
  - HALLUCINATION, VISUAL [None]
  - HEAD BANGING [None]
  - HEADACHE [None]
  - NIGHTMARE [None]
  - OBSESSIVE THOUGHTS [None]
  - SELF INJURIOUS BEHAVIOUR [None]
  - SUICIDAL IDEATION [None]
  - THINKING ABNORMAL [None]
  - WEIGHT DECREASED [None]
